FAERS Safety Report 22539412 (Version 1)
Quarter: 2023Q2

REPORT INFORMATION
  Report Type: Spontaneous
  Country: EE (occurrence: EE)
  Receive Date: 20230609
  Receipt Date: 20230609
  Transmission Date: 20230721
  Serious: Yes (Death)
  Sender: FDA-Public Use
  Company Number: EE-CELLTRION INC.-2023EE011441

PATIENT

DRUGS (2)
  1. RITUXIMAB [Suspect]
     Active Substance: RITUXIMAB
     Indication: Epstein-Barr virus infection
     Dosage: UNK
  2. RITUXIMAB [Suspect]
     Active Substance: RITUXIMAB
     Indication: Diffuse large B-cell lymphoma

REACTIONS (3)
  - False negative investigation result [Fatal]
  - Treatment delayed [Fatal]
  - Drug effect less than expected [Fatal]
